FAERS Safety Report 6923895-6 (Version None)
Quarter: 2010Q3

REPORT INFORMATION
  Report Type: 
  Country: None (occurrence: None)
  Receive Date: 20100813
  Receipt Date: 20100524
  Transmission Date: 20110219
  Serious: No
  Sender: FDA-Public Use
  Company Number: US-BRISTOL-MYERS SQUIBB COMPANY-15074339

PATIENT
  Age: 41 Year
  Sex: Female

DRUGS (2)
  1. REYATAZ [Suspect]
     Dosage: 2DF-2 CAPS
     Route: 048
     Dates: start: 20100415
  2. EPZICOM [Suspect]
     Dates: start: 20100415

REACTIONS (2)
  - DYSGEUSIA [None]
  - PRODUCT ODOUR ABNORMAL [None]
